FAERS Safety Report 20236687 (Version 9)
Quarter: 2022Q4

REPORT INFORMATION
  Report Type: Spontaneous
  Country: US (occurrence: US)
  Receive Date: 20211228
  Receipt Date: 20221225
  Transmission Date: 20230113
  Serious: No
  Sender: FDA-Public Use
  Company Number: US-GLAXOSMITHKLINE-US2021AMR262853

PATIENT
  Age: 84 Year
  Sex: Female

DRUGS (3)
  1. ZEJULA [Suspect]
     Active Substance: NIRAPARIB
     Indication: Ovarian cancer
     Dosage: 200 MG, QD
     Dates: start: 20211209
  2. ZEJULA [Suspect]
     Active Substance: NIRAPARIB
     Indication: Uveitis
     Dosage: 200 MG, QD
  3. GABAPENTIN [Concomitant]
     Active Substance: GABAPENTIN
     Indication: Product used for unknown indication
     Dosage: UNK

REACTIONS (7)
  - Nausea [Recovered/Resolved]
  - Abdominal pain [Recovering/Resolving]
  - Eating disorder [Recovering/Resolving]
  - Blood pressure increased [Recovering/Resolving]
  - Night sweats [Recovered/Resolved]
  - Anaemia [Not Recovered/Not Resolved]
  - Off label use [Not Recovered/Not Resolved]

NARRATIVE: CASE EVENT DATE: 20211201
